FAERS Safety Report 4686047-9 (Version None)
Quarter: 2005Q2

REPORT INFORMATION
  Report Type: 
  Country: None (occurrence: None)
  Receive Date: 20050609
  Receipt Date: 20050511
  Transmission Date: 20051028
  Serious: Yes (Death)
  Sender: FDA-Public Use
  Company Number: US-BRISTOL-MYERS SQUIBB COMPANY-12967071

PATIENT
  Age: 56 Year
  Sex: Male

DRUGS (5)
  1. CEENU [Suspect]
     Indication: GLIOBLASTOMA
     Route: 048
     Dates: start: 20050415, end: 20050417
  2. RADIATION THERAPY [Concomitant]
  3. TEMODAR [Concomitant]
     Route: 048
     Dates: end: 20050419
  4. IRINOTECAN HCL [Concomitant]
     Route: 042
     Dates: end: 20050421
  5. THALIDOMIDE [Concomitant]
     Dates: end: 20050329

REACTIONS (1)
  - MALIGNANT NEOPLASM PROGRESSION [None]
